FAERS Safety Report 4768695-0 (Version None)
Quarter: 2005Q3

REPORT INFORMATION
  Report Type: 
  Country: None (occurrence: None)
  Receive Date: 20050914
  Receipt Date: 20050908
  Transmission Date: 20060218
  Serious: Yes (Death)
  Sender: FDA-Public Use
  Company Number: US-JNJFOC-20041001853

PATIENT
  Sex: Female
  Weight: 81.19 kg

DRUGS (1)
  1. ORTHO EVRA [Suspect]
     Route: 062
     Dates: start: 20040121

REACTIONS (1)
  - PULMONARY EMBOLISM [None]
